FAERS Safety Report 10515421 (Version 13)
Quarter: 2021Q3

REPORT INFORMATION
  Report Type: Spontaneous
  Country: GB (occurrence: GB)
  Receive Date: 20141014
  Receipt Date: 20210902
  Transmission Date: 20211014
  Serious: Yes (Hospitalization, Other)
  Sender: FDA-Public Use
  Company Number: GB-AUROBINDO-AUR-APL-2014-10669

PATIENT
  Age: 65 Year
  Sex: Male
  Weight: 94 kg

DRUGS (34)
  1. CAPECITABINE. [Suspect]
     Active Substance: CAPECITABINE
     Indication: GASTRIC CANCER
     Route: 048
     Dates: start: 20120124
  2. FUROSEMIDE. [Suspect]
     Active Substance: FUROSEMIDE
     Indication: GASTRIC CANCER
     Dosage: UNK
     Route: 065
  3. FUROSEMIDE. [Suspect]
     Active Substance: FUROSEMIDE
     Dosage: DATE OF LAST DOSE: 06/MAR/2012
     Route: 048
     Dates: start: 20120124
  4. AVASTIN [Suspect]
     Active Substance: BEVACIZUMAB
     Indication: GASTRIC CANCER
     Dosage: 113 MILLIGRAM
     Route: 042
  5. EMEND [Suspect]
     Active Substance: APREPITANT
     Dosage: 113 MILLIGRAM(DATE OF LAST DOSE: 06/MAR/2012)
     Route: 048
     Dates: start: 20120124
  6. LISINOPRIL. [Concomitant]
     Active Substance: LISINOPRIL
     Indication: PRODUCT USED FOR UNKNOWN INDICATION
     Dosage: 5 MG, UNK
     Route: 065
     Dates: start: 200705
  7. SIMVASTATIN. [Concomitant]
     Active Substance: SIMVASTATIN
     Indication: PRODUCT USED FOR UNKNOWN INDICATION
     Dosage: 80 MG, UNK
     Route: 048
     Dates: start: 200503
  8. DEXAMETHASONE. [Suspect]
     Active Substance: DEXAMETHASONE
     Indication: GASTRIC CANCER
     Dosage: UNK
     Route: 048
     Dates: start: 20120124
  9. BEVACIZUMAB. [Suspect]
     Active Substance: BEVACIZUMAB
     Indication: GASTRIC CANCER
     Dates: start: 20120124
  10. ONDANSETRON. [Suspect]
     Active Substance: ONDANSETRON
     Indication: GASTRIC CANCER
     Dosage: 16 MILLIGRAM, DAILY
     Route: 048
     Dates: start: 20120124
  11. AVASTIN [Suspect]
     Active Substance: BEVACIZUMAB
     Dosage: 743 MILLIGRAM (LAST DOSE ADMINISTRED ON 06 MAR 2012))
     Route: 042
     Dates: start: 20120124, end: 20210306
  12. EMEND [Suspect]
     Active Substance: APREPITANT
     Indication: GASTRIC CANCER
     Dosage: UNK
     Route: 065
  13. LISINOPRIL. [Concomitant]
     Active Substance: LISINOPRIL
     Indication: PRODUCT USED FOR UNKNOWN INDICATION
  14. ONDANSETRON [Suspect]
     Active Substance: ONDANSETRON
     Dosage: DATE OF LAST DOSE: 09/MAR/2012
     Route: 048
     Dates: start: 20120124
  15. ONDANSETRON [Suspect]
     Active Substance: ONDANSETRON
     Dosage: DATE OF LAST DOSE: 09/MAR/2012
     Route: 048
     Dates: start: 20120124
  16. AVASTIN [Suspect]
     Active Substance: BEVACIZUMAB
     Indication: GASTRIC CANCER
     Dosage: UNK
     Route: 065
  17. DEXAMETHASONE. [Suspect]
     Active Substance: DEXAMETHASONE
     Dosage: DATE OF LAST DOSE: 09/MAR/2012
     Route: 048
     Dates: start: 20120124, end: 20120309
  18. EPIRUBICIN [Suspect]
     Active Substance: EPIRUBICIN
     Indication: GASTRIC CANCER
     Dosage: 95 MG,DATE OF MOST RECENT ADMINISTRATION: 06/MAR/2012
     Route: 042
     Dates: start: 20120124, end: 20120306
  19. EPIRUBICIN HYDROCHLORIDE. [Suspect]
     Active Substance: EPIRUBICIN HYDROCHLORIDE
     Indication: GASTRIC CANCER
     Dosage: 95 MG (DATE OF MOST RECENT ADMINISTRATION: 06/MAR/2012)
     Route: 042
     Dates: start: 20120124, end: 20120306
  20. XELODA [Suspect]
     Active Substance: CAPECITABINE
     Indication: GASTRIC CANCER
     Dosage: DATE OF MOST RECENT ADMINISTRATION: 27/MAR/2012; THERAPY END FLAG: DRUG NO LONGER ADMINISTERED
     Route: 048
     Dates: start: 20120124, end: 20120327
  21. XELODA [Suspect]
     Active Substance: CAPECITABINE
     Indication: GASTRIC CANCER
  22. ONDANSETRON. [Suspect]
     Active Substance: ONDANSETRON
     Dosage: 113 GRAM ((DATE OF LAST DOSE: 09 MAR 2012)
     Route: 048
     Dates: start: 20120124
  23. AVASTIN [Suspect]
     Active Substance: BEVACIZUMAB
     Dosage: 113 MILLIGRAM
     Route: 042
     Dates: start: 20210124
  24. AVASTIN [Suspect]
     Active Substance: BEVACIZUMAB
     Dosage: 743 MG (DATE OF MOST RECENT ADMINISTRATION: 06/MAR/2012)
     Route: 042
     Dates: start: 20120124, end: 20120306
  25. CISPLATIN. [Suspect]
     Active Substance: CISPLATIN
     Indication: GASTRIC CANCER
     Dosage: 113 MILLIGRAM
     Route: 042
     Dates: start: 20120124
  26. CISPLATIN. [Suspect]
     Active Substance: CISPLATIN
     Indication: GASTRIC CANCER
  27. DEXAMETHASONE. [Suspect]
     Active Substance: DEXAMETHASONE
     Indication: GASTRIC CANCER
     Dosage: UNK
     Route: 048
     Dates: start: 20120124, end: 20120309
  28. EMEND [Suspect]
     Active Substance: APREPITANT
     Dosage: 125 MILLIGRAM, DAILY
     Route: 048
     Dates: start: 20120124
  29. EPIRUBICIN HYDROCHLORIDE. [Suspect]
     Active Substance: EPIRUBICIN HYDROCHLORIDE
     Dosage: UNK
     Route: 042
     Dates: start: 20120124
  30. FRUSEMIDE [Suspect]
     Active Substance: FUROSEMIDE
     Indication: GASTRIC CANCER
     Dosage: DATE OF LAST DOSE: 06/MAR/2012; PREFERRED PRODUCT DESCRIPTION: FUROSEMIDE THERAPY
     Route: 048
     Dates: start: 20120124, end: 20120306
  31. ONDANSETRON [Suspect]
     Active Substance: ONDANSETRON
     Indication: GASTRIC CANCER
     Dosage: UNK
     Route: 065
  32. DEXAMETHASONE. [Suspect]
     Active Substance: DEXAMETHASONE
     Dosage: 12 MILLIGRAM, DAILY
     Route: 048
     Dates: start: 20120124
  33. EPIRUBICIN [Suspect]
     Active Substance: EPIRUBICIN
     Indication: GASTRIC CANCER
     Dosage: 95 MG,DATE OF MOST RECENT ADMINISTRATION: 06/MAR/2012
     Route: 042
     Dates: start: 20120124, end: 20210306
  34. APREPITANT. [Suspect]
     Active Substance: APREPITANT
     Indication: GASTRIC CANCER
     Dosage: DATE OF LAST DOSE: 06/MAR/2012
     Route: 048
     Dates: start: 20120124, end: 20120306

REACTIONS (5)
  - Abdominal sepsis [Recovered/Resolved]
  - Vomiting [Recovered/Resolved]
  - Hypotension [Recovered/Resolved]
  - Febrile neutropenia [Recovered/Resolved]
  - Diarrhoea [Recovered/Resolved]

NARRATIVE: CASE EVENT DATE: 20120313
